FAERS Safety Report 8554729-4 (Version None)
Quarter: 2012Q3

REPORT INFORMATION
  Report Type: 
  Country: None (occurrence: None)
  Receive Date: 20120731
  Receipt Date: 20120130
  Transmission Date: 20120928
  Serious: Yes (Life-Threatening, Disabling, Other)
  Sender: FDA-Public Use
  Company Number: CHPA2012US001640

PATIENT
  Sex: Female

DRUGS (1)
  1. EXCEDRIN (MIGRAINE) [Suspect]
     Indication: MIGRAINE
     Dosage: 2 DF, PRN, FOR 20 YEARS
     Route: 048

REACTIONS (16)
  - FEELING ABNORMAL [None]
  - HEADACHE [None]
  - DRUG INEFFECTIVE [None]
  - DIZZINESS [None]
  - EYE MOVEMENT DISORDER [None]
  - TREMOR [None]
  - SWOLLEN TONGUE [None]
  - EUPHORIC MOOD [None]
  - VOMITING [None]
  - ILLUSION [None]
  - LIP SWELLING [None]
  - VERTIGO [None]
  - LOSS OF CONSCIOUSNESS [None]
  - MOBILITY DECREASED [None]
  - CEREBROVASCULAR ACCIDENT [None]
  - VISUAL IMPAIRMENT [None]
